FAERS Safety Report 8101116-9 (Version None)
Quarter: 2012Q1

REPORT INFORMATION
  Report Type: 
  Country: None (occurrence: None)
  Receive Date: 20120129
  Receipt Date: 20110907
  Transmission Date: 20120608
  Serious: Yes (Life-Threatening, Hospitalization)
  Sender: FDA-Public Use
  Company Number: US-ABBOTT-11P-163-0852908-00

PATIENT
  Age: 16 Year
  Sex: Male
  Weight: 63.5 kg

DRUGS (2)
  1. MERCAPTOPURINE [Suspect]
     Indication: COLITIS ULCERATIVE
  2. HUMIRA [Suspect]
     Indication: COLITIS ULCERATIVE

REACTIONS (1)
  - HODGKIN'S DISEASE [None]
